FAERS Safety Report 12681722 (Version 2)
Quarter: 2016Q4

REPORT INFORMATION
  Report Type: Spontaneous
  Country: US (occurrence: US)
  Receive Date: 20160824
  Receipt Date: 20161118
  Transmission Date: 20170207
  Serious: No
  Sender: FDA-Public Use
  Company Number: US-009507513-1608USA008328

PATIENT
  Sex: Female

DRUGS (1)
  1. NUVARING [Suspect]
     Active Substance: ETHINYL ESTRADIOL\ETONOGESTREL
     Indication: MENSTRUAL CYCLE MANAGEMENT
     Dosage: UNK, Q3W
     Route: 067

REACTIONS (4)
  - Inappropriate schedule of drug administration [Unknown]
  - Intentional overdose [Unknown]
  - Product colour issue [Unknown]
  - Intentional product misuse [Unknown]
